FAERS Safety Report 9809081 (Version 1)
Quarter: 2014Q1

REPORT INFORMATION
  Report Type: Spontaneous
  Country: US (occurrence: US)
  Receive Date: 20140110
  Receipt Date: 20140110
  Transmission Date: 20141002
  Serious: Yes (Death)
  Sender: FDA-Public Use
  Company Number: US-ASTRAZENECA-2014SE01584

PATIENT
  Age: 50 Year
  Sex: Female

DRUGS (7)
  1. LISINOPRIL [Suspect]
     Route: 048
  2. CITALOPRAM [Suspect]
     Route: 048
  3. ACETAMINOPHEN/HYDROCODONE [Suspect]
     Route: 048
  4. PREGABALIN [Suspect]
     Route: 048
  5. TRAMADOL [Suspect]
     Route: 048
  6. DICLOFENAC [Suspect]
     Route: 048
  7. CONJUGATED ESTROGENS [Suspect]
     Route: 048

REACTIONS (3)
  - Toxicity to various agents [Fatal]
  - Completed suicide [Fatal]
  - Cardio-respiratory arrest [Fatal]
